FAERS Safety Report 5282235-1 (Version None)
Quarter: 2007Q1

REPORT INFORMATION
  Report Type: 
  Country: None (occurrence: None)
  Receive Date: 20070330
  Receipt Date: 20070320
  Transmission Date: 20070707
  Serious: Yes (Other)
  Sender: FDA-Public Use
  Company Number: US-PFIZER INC-2007022355

PATIENT
  Sex: Female
  Weight: 68 kg

DRUGS (8)
  1. CELEBREX [Suspect]
     Indication: PAIN IN EXTREMITY
  2. CELEBREX [Suspect]
     Indication: ARTHRALGIA
  3. XANAX [Suspect]
     Indication: ANXIETY
  4. ZYRTEC [Suspect]
     Indication: HYPERSENSITIVITY
  5. ZIAC [Concomitant]
  6. PRILOSEC [Concomitant]
  7. TAMOXIFEN CITRATE [Concomitant]
  8. ALL OTHER THERAPEUTIC PRODUCTS [Concomitant]

REACTIONS (1)
  - HEPATIC STEATOSIS [None]
